FAERS Safety Report 5131155-1 (Version None)
Quarter: 2006Q3

REPORT INFORMATION
  Report Type: 
  Country: None (occurrence: None)
  Receive Date: 20060830
  Receipt Date: 20051123
  Transmission Date: 20061208
  Serious: Yes (Death)
  Sender: FDA-Public Use
  Company Number: 200511983BWH

PATIENT

DRUGS (2)
  1. TRASYLOL [Suspect]
     Indication: CARDIAC OPERATION
     Dates: start: 20050901
  2. PROTAMINE SULFATE [Suspect]
     Dates: start: 20050901

REACTIONS (1)
  - HYPERSENSITIVITY [None]
